FAERS Safety Report 7541075-0 (Version None)
Quarter: 2011Q2

REPORT INFORMATION
  Report Type: 
  Country: None (occurrence: None)
  Receive Date: 20110610
  Receipt Date: 20110601
  Transmission Date: 20111010
  Serious: Yes (Hospitalization)
  Sender: FDA-Public Use
  Company Number: NL-GENENTECH-317167

PATIENT
  Sex: Female
  Weight: 74 kg

DRUGS (9)
  1. CISPLATIN [Suspect]
     Indication: MALIGNANT LYMPHOID NEOPLASM
     Dosage: 40 MG, UNK
     Route: 042
     Dates: start: 20110407
  2. DARBEPOETIN ALFA [Concomitant]
     Indication: ANAEMIA
     Dosage: UNK
     Route: 058
     Dates: start: 20110427, end: 20110427
  3. CYTARABINE [Suspect]
     Indication: MALIGNANT LYMPHOID NEOPLASM
     Dosage: 3800 MG, UNK
     Route: 042
     Dates: start: 20110408
  4. CYTARABINE [Suspect]
     Dosage: 7.6 G, UNK
     Route: 042
     Dates: start: 20110506
  5. RITUXIMAB [Suspect]
     Dosage: 950 MG, UNK
     Route: 042
     Dates: start: 20110504
  6. DEXAMETHASONE [Suspect]
     Indication: MALIGNANT LYMPHOID NEOPLASM
     Dosage: 190 MG, UNK
     Route: 048
     Dates: start: 20110407
  7. RITUXIMAB [Suspect]
     Indication: MALIGNANT LYMPHOID NEOPLASM
     Dosage: 715 MG, UNK
     Route: 042
     Dates: start: 20110406
  8. CISPLATIN [Suspect]
     Dosage: 190 MG, UNK
     Route: 042
     Dates: start: 20110505
  9. DEXAMETHASONE [Suspect]
     Dosage: 160 MG, UNK
     Route: 048
     Dates: start: 20110504

REACTIONS (2)
  - THROMBOCYTOPENIA [None]
  - EPISTAXIS [None]
